FAERS Safety Report 9437889 (Version 1)
Quarter: 2013Q3

REPORT INFORMATION
  Report Type: Spontaneous
  Country: US (occurrence: US)
  Receive Date: 20130802
  Receipt Date: 20130802
  Transmission Date: 20140515
  Serious: No
  Sender: FDA-Public Use
  Company Number: US-PFIZER INC-2013224224

PATIENT
  Age: 6 Decade
  Sex: Male

DRUGS (2)
  1. CELEBREX [Suspect]
     Indication: DIABETIC NEUROPATHY
     Dosage: UNK, AS NEEDED
  2. CELEBREX [Suspect]
     Indication: DIABETIC NEUROPATHY

REACTIONS (3)
  - Inappropriate schedule of drug administration [Unknown]
  - Off label use [Unknown]
  - Dyspnoea [Unknown]
